FAERS Safety Report 9513245 (Version 4)
Quarter: 2013Q4

REPORT INFORMATION
  Report Type: Spontaneous
  Country: US (occurrence: US)
  Receive Date: 20130910
  Receipt Date: 20131015
  Transmission Date: 20140711
  Serious: Yes (Other)
  Sender: FDA-Public Use
  Company Number: CHPA2013US013849

PATIENT
  Age: 77 Year
  Sex: Female

DRUGS (1)
  1. ALPHA-KERI MOISTURE RICH OIL [Suspect]
     Dosage: UNK, UNK
     Route: 061

REACTIONS (3)
  - Cataract [Recovering/Resolving]
  - Vision blurred [Recovering/Resolving]
  - Feeling abnormal [Unknown]
